FAERS Safety Report 19291205 (Version 1)
Quarter: 2021Q2

REPORT INFORMATION
  Report Type: Spontaneous
  Country: CA (occurrence: CA)
  Receive Date: 20210523
  Receipt Date: 20210523
  Transmission Date: 20210717
  Serious: Yes (Hospitalization, Other)
  Sender: FDA-Public Use
  Company Number: CA-TEVA-2021-CA-1914032

PATIENT
  Age: 42 Year
  Sex: Male

DRUGS (1)
  1. PREDNISONE. [Suspect]
     Active Substance: PREDNISONE
     Route: 065
     Dates: start: 202005

REACTIONS (9)
  - Shock [Unknown]
  - Alanine aminotransferase increased [Unknown]
  - Colitis ulcerative [Unknown]
  - Malaise [Unknown]
  - Blood ethanol increased [Unknown]
  - Coronavirus infection [Unknown]
  - Frequent bowel movements [Unknown]
  - Diarrhoea [Unknown]
  - Hepatic steatosis [Unknown]

NARRATIVE: CASE EVENT DATE: 2020
